FAERS Safety Report 5007379-0 (Version None)
Quarter: 2006Q2

REPORT INFORMATION
  Report Type: 
  Country: None (occurrence: None)
  Receive Date: 20060518
  Receipt Date: 20060518
  Transmission Date: 20061013
  Serious: Yes (Hospitalization)
  Sender: FDA-Public Use
  Company Number: None

PATIENT
  Age: 70 Year
  Sex: Female

DRUGS (1)
  1. LEVAQUIN [Suspect]
     Indication: PROPHYLAXIS
     Dosage: 500 MG ONCE PO
     Route: 048
     Dates: start: 20060208, end: 20060208

REACTIONS (4)
  - ERYTHEMA [None]
  - EYELID OEDEMA [None]
  - RASH [None]
  - SWELLING FACE [None]
